FAERS Safety Report 7370752-X (Version None)
Quarter: 2011Q1

REPORT INFORMATION
  Report Type: 
  Country: None (occurrence: None)
  Receive Date: 20110323
  Receipt Date: 20110316
  Transmission Date: 20110831
  Serious: Yes (Hospitalization, Other)
  Sender: FDA-Public Use
  Company Number: US-RB-024060-11

PATIENT
  Sex: Female

DRUGS (3)
  1. SUBUTEX [Suspect]
     Indication: DRUG DEPENDENCE
     Dosage: 4-8 MG DAILY
     Route: 064
     Dates: start: 20110122, end: 20110311
  2. SUBOXONE [Suspect]
     Indication: DRUG DEPENDENCE
     Dosage: 4-8 MG DAILY
     Route: 064
     Dates: start: 20100901, end: 20110121
  3. MORPHINE SULFATE [Suspect]
     Indication: PAIN
     Dosage: DOSING INFORMATION UNKNOWN
     Route: 064
     Dates: start: 20110311, end: 20110312

REACTIONS (3)
  - FEEDING DISORDER NEONATAL [None]
  - PREMATURE BABY [None]
  - DRUG EXPOSURE DURING PREGNANCY [None]
